FAERS Safety Report 9672220 (Version 1)
Quarter: 2013Q4

REPORT INFORMATION
  Report Type: Spontaneous
  Country: US (occurrence: US)
  Receive Date: 20131106
  Receipt Date: 20131106
  Transmission Date: 20140711
  Serious: No
  Sender: FDA-Public Use
  Company Number: US-ENDO PHARMACEUTICALS INC.-HCDA20130083

PATIENT
  Sex: Female

DRUGS (4)
  1. HYDROCODONE BITARTRATE / ACETAMINOPHEN 10MG/500MG [Suspect]
     Indication: BACK PAIN
     Dosage: 10/500 MG
     Route: 048
     Dates: start: 20130328
  2. HYDROCODONE BITARTRATE / ACETAMINOPHEN 10MG/500MG [Suspect]
     Indication: ARTHRITIS
  3. HYDROCODONE/ACETAMINOPHEN [Concomitant]
     Indication: BACK PAIN
     Dosage: 10/500 MG
     Route: 048
     Dates: start: 2011, end: 20130327
  4. HYDROCODONE/ACETAMINOPHEN [Concomitant]
     Indication: ARTHRITIS

REACTIONS (3)
  - Abdominal discomfort [Unknown]
  - Headache [Unknown]
  - Drug ineffective [Not Recovered/Not Resolved]
